FAERS Safety Report 7416922-3 (Version None)
Quarter: 2011Q2

REPORT INFORMATION
  Report Type: 
  Country: None (occurrence: None)
  Receive Date: 20110415
  Receipt Date: 20110405
  Transmission Date: 20111010
  Serious: Yes (Other)
  Sender: FDA-Public Use
  Company Number: JP-JNJFOC-20110403739

PATIENT
  Sex: Male

DRUGS (2)
  1. ARICEPT [Concomitant]
     Route: 065
  2. RISPERDAL [Suspect]
     Indication: SCHIZOPHRENIA
     Route: 048

REACTIONS (4)
  - LOSS OF CONSCIOUSNESS [None]
  - SYNCOPE [None]
  - HYPOTENSION [None]
  - ANAEMIA [None]
